FAERS Safety Report 6967899-6 (Version None)
Quarter: 2010Q3

REPORT INFORMATION
  Report Type: 
  Country: None (occurrence: None)
  Receive Date: 20100907
  Receipt Date: 20100702
  Transmission Date: 20110219
  Serious: No
  Sender: FDA-Public Use
  Company Number: A0868408A

PATIENT
  Age: 74 Year
  Sex: Male

DRUGS (2)
  1. ROPINIROLE [Suspect]
     Indication: PARKINSON'S DISEASE
     Dosage: 5TAB PER DAY
     Route: 048
     Dates: start: 20100416
  2. OMEPRAZOLE [Concomitant]

REACTIONS (1)
  - SOMNOLENCE [None]
